FAERS Safety Report 11180205 (Version 2)
Quarter: 2016Q1

REPORT INFORMATION
  Report Type: Spontaneous
  Country: CO (occurrence: CO)
  Receive Date: 20150611
  Receipt Date: 20160201
  Transmission Date: 20160525
  Serious: Yes (Other)
  Sender: FDA-Public Use
  Company Number: CO-JNJFOC-20150606055

PATIENT
  Age: 26 Year
  Sex: Male
  Weight: 55 kg

DRUGS (1)
  1. SIMPONI [Suspect]
     Active Substance: GOLIMUMAB
     Indication: ANKYLOSING SPONDYLITIS
     Route: 058
     Dates: start: 20150128, end: 20150423

REACTIONS (1)
  - Chikungunya virus infection [Recovered/Resolved]

NARRATIVE: CASE EVENT DATE: 20150519
